FAERS Safety Report 5923805-4 (Version None)
Quarter: 2008Q3

REPORT INFORMATION
  Report Type: 
  Country: None (occurrence: None)
  Receive Date: 20080909
  Receipt Date: 20080715
  Transmission Date: 20090109
  Serious: Yes (Other)
  Sender: FDA-Public Use
  Company Number: 163-20785-08071039

PATIENT
  Age: 79 Year
  Sex: Female

DRUGS (4)
  1. THALOMID [Suspect]
     Indication: GAMMOPATHY
     Dosage: 50 MG, 1 IN 1 D, ORAL ; 100 MG, 2 IN 1 D, ORAL ; 50 MG, 1 IN 1 D, ORAL
     Route: 048
     Dates: start: 20040220, end: 20040301
  2. THALOMID [Suspect]
     Indication: GAMMOPATHY
     Dosage: 50 MG, 1 IN 1 D, ORAL ; 100 MG, 2 IN 1 D, ORAL ; 50 MG, 1 IN 1 D, ORAL
     Route: 048
     Dates: start: 20040317, end: 20040401
  3. THALOMID [Suspect]
     Indication: GAMMOPATHY
     Dosage: 50 MG, 1 IN 1 D, ORAL ; 100 MG, 2 IN 1 D, ORAL ; 50 MG, 1 IN 1 D, ORAL
     Route: 048
     Dates: start: 20040420, end: 20040501
  4. DEXAMETHASONE TAB [Concomitant]

REACTIONS (1)
  - DEEP VEIN THROMBOSIS [None]
